FAERS Safety Report 23423474 (Version 2)
Quarter: 2024Q2

REPORT INFORMATION
  Report Type: Spontaneous
  Country: BR (occurrence: BR)
  Receive Date: 20240119
  Receipt Date: 20240619
  Transmission Date: 20240716
  Serious: Yes (Hospitalization)
  Sender: FDA-Public Use
  Company Number: BR-BIOGEN-2021BI01072540

PATIENT
  Sex: Male
  Weight: 65 kg

DRUGS (5)
  1. TYSABRI [Suspect]
     Active Substance: NATALIZUMAB
     Indication: Multiple sclerosis
     Route: 050
     Dates: start: 202102, end: 202108
  2. TYSABRI [Suspect]
     Active Substance: NATALIZUMAB
     Route: 050
     Dates: start: 202107
  3. TYSABRI [Suspect]
     Active Substance: NATALIZUMAB
     Dosage: AROUND 4 OR 5 YEARS AGO
     Route: 050
     Dates: start: 2021
  4. TYSABRI [Suspect]
     Active Substance: NATALIZUMAB
     Route: 050
     Dates: start: 20221124
  5. TYSABRI [Suspect]
     Active Substance: NATALIZUMAB
     Route: 050
     Dates: start: 2022

REACTIONS (13)
  - Hydrocele [Recovered/Resolved]
  - Back pain [Not Recovered/Not Resolved]
  - Visual impairment [Unknown]
  - Dysstasia [Not Recovered/Not Resolved]
  - Arthropathy [Not Recovered/Not Resolved]
  - Spinal deformity [Not Recovered/Not Resolved]
  - Primary progressive multiple sclerosis [Not Recovered/Not Resolved]
  - Gait disturbance [Not Recovered/Not Resolved]
  - Panic attack [Recovered/Resolved]
  - Trigeminal neuritis [Not Recovered/Not Resolved]
  - Calcinosis [Not Recovered/Not Resolved]
  - Progressive multiple sclerosis [Unknown]
  - Motor dysfunction [Not Recovered/Not Resolved]

NARRATIVE: CASE EVENT DATE: 20210101
